FAERS Safety Report 10452218 (Version 4)
Quarter: 2014Q4

REPORT INFORMATION
  Report Type: Spontaneous
  Country: IT (occurrence: IT)
  Receive Date: 20140915
  Receipt Date: 20141021
  Transmission Date: 20150528
  Serious: Yes (Life-Threatening, Hospitalization)
  Sender: FDA-Public Use
  Company Number: PHHY2014IT118223

PATIENT
  Age: 71 Year
  Sex: Male
  Weight: 89.7 kg

DRUGS (16)
  1. SANDIMMUN NEORAL [Concomitant]
     Active Substance: CYCLOSPORINE
     Indication: HEART TRANSPLANT
     Dosage: 25 MG (8:00 AM AND 8:00 PM)
     Route: 065
  2. ISOPURAMIN [Concomitant]
     Indication: PRODUCT USED FOR UNKNOWN INDICATION
     Dosage: 1 DF (500 CC 1 VIAL DURING DIALYSIS)
     Route: 065
  3. PANTORC [Concomitant]
     Active Substance: PANTOPRAZOLE SODIUM
     Dosage: 1 DF (40 MG) 08.00 AM, UNK
     Route: 065
  4. ESAFOSFINA [Concomitant]
     Indication: PRODUCT USED FOR UNKNOWN INDICATION
     Dosage: 0.5 DF (VIAL), QD
     Route: 042
  5. CERTICAN [Suspect]
     Active Substance: EVEROLIMUS
     Indication: PROPHYLAXIS AGAINST TRANSPLANT REJECTION
     Dosage: 0.25 MG (8:00 AND 8:00 PM)
     Route: 048
  6. CERTICAN [Suspect]
     Active Substance: EVEROLIMUS
     Dosage: 0.5 MG, A DAY
     Route: 048
     Dates: start: 20100101
  7. CALCIPARINE [Concomitant]
     Active Substance: HEPARIN CALCIUM
     Indication: PRODUCT USED FOR UNKNOWN INDICATION
     Dosage: 1 DF, BID (0.2 CC, 1 VIAL , AT 08.00 AM AND 08.00 PM)
     Route: 058
  8. FERLIXIT [Concomitant]
     Active Substance: SODIUM FERRIC GLUCONATE COMPLEX
     Indication: PRODUCT USED FOR UNKNOWN INDICATION
     Dosage: 0.5 DF (62.5 MG, HALF VIAL AT THE END OF EACH DIALYSIS)
     Route: 065
  9. MACLADIN [Suspect]
     Active Substance: CLARITHROMYCIN
     Indication: ERYSIPELAS
     Dosage: 1000 MG, A DAY
     Route: 048
     Dates: start: 20140725, end: 20140805
  10. AMLODIPINE [Concomitant]
     Active Substance: AMLODIPINE BESYLATE
     Indication: HYPERTENSION
     Dosage: 5 MG, UNK
     Route: 048
     Dates: start: 20100101, end: 20140817
  11. LEDERFOLIN [Concomitant]
     Active Substance: LEUCOVORIN CALCIUM
     Indication: PRODUCT USED FOR UNKNOWN INDICATION
     Dosage: 1 DF (1 VIAL BEFORE THE DIALYSIS OF THE WEEK)
     Route: 065
  12. SANDIMMUN NEORAL [Concomitant]
     Active Substance: CYCLOSPORINE
     Dosage: 75 MG, UNK
     Route: 048
     Dates: start: 20020101, end: 20140826
  13. INEGY [Suspect]
     Active Substance: EZETIMIBE\SIMVASTATIN
     Indication: DYSLIPIDAEMIA
     Dosage: 1 (POSOLO GIC UNIT) DF, A DAY
     Route: 048
     Dates: end: 20140817
  14. PANTORC [Concomitant]
     Active Substance: PANTOPRAZOLE SODIUM
     Indication: PRODUCT USED FOR UNKNOWN INDICATION
     Dosage: 1 DF (20 MG) ((8:00 AM)
     Route: 065
  15. EPOETIN ZETA [Concomitant]
     Active Substance: ERYTHROPOIETIN
     Indication: PRODUCT USED FOR UNKNOWN INDICATION
     Dosage: 1 DF (1 VIAL AT THE END OF THE DIALYSIS (ON MONDAY, WEDNESDAY, AND FRIDAY))
     Route: 058
  16. NEPRO  HP [Concomitant]
     Indication: PRODUCT USED FOR UNKNOWN INDICATION
     Dosage: 1 DF (1 VIAL HOUR 08.00 A.M)
     Route: 065

REACTIONS (2)
  - Rhabdomyolysis [Recovering/Resolving]
  - Acute kidney injury [Recovering/Resolving]

NARRATIVE: CASE EVENT DATE: 20140810
